FAERS Safety Report 5926103-8 (Version None)
Quarter: 2008Q4

REPORT INFORMATION
  Report Type: 
  Country: None (occurrence: None)
  Receive Date: 20081016
  Receipt Date: 20081003
  Transmission Date: 20090506
  Serious: Yes (Other)
  Sender: FDA-Public Use
  Company Number: TRP_05922_2008

PATIENT
  Age: 52 Year
  Sex: Female

DRUGS (2)
  1. RIBAVIRIN [Suspect]
     Indication: HEPATITIS C VIRUS TEST
     Dosage: 1.2 G ORAL
     Route: 048
  2. PEGYLATED INTERFERON ALFA-2A (PEGYLATED INTERFERON ALFA 2A) [Suspect]
     Indication: HEPATITIS C VIRUS TEST
     Dosage: 180 ?G 1X WEEK SUBCUTANEOUS
     Route: 058

REACTIONS (2)
  - ACUTE FEBRILE NEUTROPHILIC DERMATOSIS [None]
  - ARTHRALGIA [None]
